FAERS Safety Report 9648894 (Version 1)
Quarter: 2013Q4

REPORT INFORMATION
  Report Type: Spontaneous
  Country: US (occurrence: None)
  Receive Date: 20131025
  Receipt Date: 20131025
  Transmission Date: 20140711
  Serious: Yes (Disabling)
  Sender: FDA-Public Use
  Company Number: None

PATIENT
  Age: 41 Year
  Sex: Female
  Weight: 61.24 kg

DRUGS (1)
  1. CIPRO [Suspect]
     Indication: SINUSITIS

REACTIONS (2)
  - Renal failure acute [None]
  - Renal disorder [None]
